FAERS Safety Report 13722174 (Version 1)
Quarter: 2017Q3

REPORT INFORMATION
  Report Type: Spontaneous
  Country: DE (occurrence: DE)
  Receive Date: 20170706
  Receipt Date: 20170706
  Transmission Date: 20171127
  Serious: Yes (Disabling)
  Sender: FDA-Public Use
  Company Number: DE-JNJFOC-20170702806

PATIENT
  Age: 55 Year
  Sex: Female
  Weight: 88 kg

DRUGS (1)
  1. XARELTO [Suspect]
     Active Substance: RIVAROXABAN
     Indication: PULMONARY EMBOLISM
     Route: 048
     Dates: start: 201605, end: 201610

REACTIONS (2)
  - Dysgeusia [Recovered/Resolved with Sequelae]
  - Parosmia [Recovered/Resolved with Sequelae]

NARRATIVE: CASE EVENT DATE: 20160815
